FAERS Safety Report 20994485 (Version 4)
Quarter: 2022Q4

REPORT INFORMATION
  Report Type: Report from Study
  Country: CA (occurrence: CA)
  Receive Date: 20220622
  Receipt Date: 20221004
  Transmission Date: 20230112
  Serious: Yes (Hospitalization, Other)
  Sender: FDA-Public Use
  Company Number: CA-MYLANLABS-2022M1041704

PATIENT
  Age: 7 Year
  Sex: Male

DRUGS (5)
  1. HULIO [Suspect]
     Active Substance: ADALIMUMAB-FKJP
     Indication: Crohn^s disease
     Dosage: UNK
     Route: 065
  2. HULIO [Suspect]
     Active Substance: ADALIMUMAB-FKJP
     Dosage: 160 MILLIGRAM, (GIVEN IN HOSPITAL)
     Route: 058
  3. HULIO [Suspect]
     Active Substance: ADALIMUMAB-FKJP
     Dosage: 80 MILLIGRAM, (GIVEN IN MDU AT WEEK2)
     Route: 058
  4. HULIO [Suspect]
     Active Substance: ADALIMUMAB-FKJP
     Dosage: 40 MILLIGRAM, (GIVEN IN MDU AT WEEK 4)
     Route: 058
  5. HULIO [Suspect]
     Active Substance: ADALIMUMAB-FKJP
     Dosage: 40 MILLIGRAM, (WEEKLY)
     Route: 058

REACTIONS (5)
  - Haematochezia [Unknown]
  - Condition aggravated [Unknown]
  - COVID-19 [Unknown]
  - Frequent bowel movements [Unknown]
  - Product dose omission issue [Unknown]
